FAERS Safety Report 15097286 (Version 3)
Quarter: 2018Q3

REPORT INFORMATION
  Report Type: Report from Study
  Country: US (occurrence: US)
  Receive Date: 20180702
  Receipt Date: 20180803
  Transmission Date: 20181010
  Serious: Yes (Hospitalization, Other)
  Sender: FDA-Public Use
  Company Number: US-GILEAD-2018-0347794

PATIENT
  Age: 74 Year
  Sex: Female

DRUGS (9)
  1. OMEPRAZOLE. [Concomitant]
     Active Substance: OMEPRAZOLE
  2. AMBRISENTAN [Suspect]
     Active Substance: AMBRISENTAN
     Indication: PULMONARY ARTERIAL HYPERTENSION
     Dosage: 10 MG, QD
     Route: 065
     Dates: start: 20180605
  3. METOPROLOL. [Concomitant]
     Active Substance: METOPROLOL
  4. AMBRISENTAN [Suspect]
     Active Substance: AMBRISENTAN
     Indication: PULMONARY HYPERTENSION
  5. JAKAFI [Concomitant]
     Active Substance: RUXOLITINIB
  6. OFLOXACIN. [Concomitant]
     Active Substance: OFLOXACIN
  7. FUROSEMIDE. [Concomitant]
     Active Substance: FUROSEMIDE
  8. HYDROXYUREA. [Concomitant]
     Active Substance: HYDROXYUREA
  9. LOSARTAN POTASSIUM. [Concomitant]
     Active Substance: LOSARTAN POTASSIUM

REACTIONS (2)
  - Dysphagia [Not Recovered/Not Resolved]
  - Terminal state [Unknown]

NARRATIVE: CASE EVENT DATE: 20180627
